FAERS Safety Report 4355501-1 (Version None)
Quarter: 2004Q2

REPORT INFORMATION
  Report Type: 
  Country: None (occurrence: None)
  Receive Date: 20040503
  Receipt Date: 20030815
  Transmission Date: 20050107
  Serious: Yes (Hospitalization, Other)
  Sender: FDA-Public Use
  Company Number: PHEH2003US07418

PATIENT
  Age: 75 Year
  Sex: Female
  Weight: 47.6 kg

DRUGS (2)
  1. LOTREL [Suspect]
     Dosage: 1 CAPSULE/QD, ORAL
     Route: 048
     Dates: start: 20000101, end: 20030701
  2. TOPROL-XL [Concomitant]

REACTIONS (4)
  - ANGIONEUROTIC OEDEMA [None]
  - OEDEMA PERIPHERAL [None]
  - PURPURA [None]
  - RASH MACULAR [None]
